FAERS Safety Report 4283754-7 (Version None)
Quarter: 2004Q1

REPORT INFORMATION
  Report Type: 
  Country: None (occurrence: None)
  Receive Date: 20040130
  Receipt Date: 20040130
  Transmission Date: 20041129
  Serious: Yes (Other)
  Sender: FDA-Public Use
  Company Number: None

PATIENT
  Age: 63 Year
  Sex: Male
  Weight: 87.0906 kg

DRUGS (7)
  1. IRESSA [Suspect]
     Indication: SQUAMOUS CELL CARCINOMA
     Dosage: 250 MG DAILY PER
     Dates: start: 20031218, end: 20040122
  2. BUPROPION HCL [Concomitant]
  3. DOCUSATE [Concomitant]
  4. FENTANYL [Concomitant]
  5. FLUOXETINE [Concomitant]
  6. FUROSEMIDE [Concomitant]
  7. GLIPIZ [Concomitant]

REACTIONS (2)
  - DRUG TOXICITY [None]
  - HYPOXIA [None]
